FAERS Safety Report 15629469 (Version 1)
Quarter: 2018Q4

REPORT INFORMATION
  Report Type: Report from Study
  Country: CN (occurrence: CN)
  Receive Date: 20181117
  Receipt Date: 20181117
  Transmission Date: 20190205
  Serious: Yes (Other)
  Sender: FDA-Public Use
  Company Number: CN-ROCHE-2212874

PATIENT

DRUGS (3)
  1. CISPLATIN. [Suspect]
     Active Substance: CISPLATIN
     Indication: GASTRIC CANCER
     Dosage: AT THE FIRST 5 DAYS
     Route: 041
  2. BEVACIZUMAB. [Suspect]
     Active Substance: BEVACIZUMAB
     Indication: GASTRIC CANCER
     Route: 041
  3. DOCETAXEL. [Suspect]
     Active Substance: DOCETAXEL
     Indication: GASTRIC CANCER
     Route: 041

REACTIONS (6)
  - Diarrhoea [Unknown]
  - Platelet count decreased [Unknown]
  - Hepatic function abnormal [Unknown]
  - White blood cell count decreased [Unknown]
  - Bone marrow failure [Unknown]
  - Renal impairment [Unknown]
